FAERS Safety Report 7050993-1 (Version None)
Quarter: 2010Q4

REPORT INFORMATION
  Report Type: 
  Country: None (occurrence: None)
  Receive Date: 20101012
  Receipt Date: 20100929
  Transmission Date: 20110411
  Serious: Yes (Hospitalization)
  Sender: FDA-Public Use
  Company Number: 019604

PATIENT
  Age: 72 Year
  Sex: Male

DRUGS (2)
  1. KEPPRA [Suspect]
  2. COUMADIN [Concomitant]

REACTIONS (3)
  - CARDIAC MURMUR [None]
  - COUGH [None]
  - NEOPLASM MALIGNANT [None]
